FAERS Safety Report 19759134 (Version 3)
Quarter: 2021Q4

REPORT INFORMATION
  Report Type: Spontaneous
  Country: US (occurrence: US)
  Receive Date: 20210829
  Receipt Date: 20211225
  Transmission Date: 20220303
  Serious: No
  Sender: FDA-Public Use
  Company Number: US-SA-SAC20210826001064

PATIENT
  Age: 52 Year
  Sex: Female

DRUGS (2)
  1. DUPIXENT [Suspect]
     Active Substance: DUPILUMAB
     Indication: Asthma
     Dosage: 300MG, QOW
     Route: 058
     Dates: start: 20210713
  2. DUPIXENT [Suspect]
     Active Substance: DUPILUMAB
     Indication: Heavy menstrual bleeding

REACTIONS (11)
  - Abdominal pain upper [Unknown]
  - Migraine [Unknown]
  - Chest pain [Unknown]
  - Sinusitis [Unknown]
  - Dyspnoea [Recovered/Resolved]
  - Upper respiratory tract infection [Unknown]
  - Dyspnoea [Unknown]
  - Weight increased [Unknown]
  - Product use issue [Unknown]
  - Product dose omission issue [Unknown]
  - Product use in unapproved indication [Unknown]

NARRATIVE: CASE EVENT DATE: 20210101
